FAERS Safety Report 4750607-7 (Version None)
Quarter: 2005Q3

REPORT INFORMATION
  Report Type: 
  Country: None (occurrence: None)
  Receive Date: 20050823
  Receipt Date: 20050812
  Transmission Date: 20060218
  Serious: Yes (Death)
  Sender: FDA-Public Use
  Company Number: FR-ROCHE-413961

PATIENT
  Age: 45 Year
  Sex: Male

DRUGS (6)
  1. XELODA [Suspect]
     Indication: ADENOCARCINOMA
     Dosage: DAY 1 TO DAY 4 OF EVERY 3 WEEKS.
     Route: 048
     Dates: start: 20030228
  2. XELODA [Suspect]
     Dosage: DAY 1 TO DAY 4 OF EVERY 3 WEEKS.
     Route: 048
     Dates: start: 20030321
  3. CISPLATIN [Suspect]
     Dosage: ON DAY 1.
     Route: 042
     Dates: start: 20050228
  4. CISPLATIN [Suspect]
     Route: 042
     Dates: start: 20030321
  5. FARMORUBICIN [Suspect]
     Dosage: ON DAY 1.
     Route: 042
     Dates: start: 20030228
  6. FARMORUBICIN [Suspect]
     Route: 042
     Dates: start: 20030321

REACTIONS (6)
  - ASTHENIA [None]
  - GENERAL PHYSICAL HEALTH DETERIORATION [None]
  - HAEMORRHAGE [None]
  - MUCOSAL INFLAMMATION [None]
  - NECROSIS [None]
  - STOMATITIS [None]
